FAERS Safety Report 6193425-8 (Version None)
Quarter: 2009Q2

REPORT INFORMATION
  Report Type: 
  Country: None (occurrence: None)
  Receive Date: 20090518
  Receipt Date: 20081030
  Transmission Date: 20091009
  Serious: No
  Sender: FDA-Public Use
  Company Number: US-ABBOTT-08P-163-0484867-00

PATIENT
  Sex: Male

DRUGS (3)
  1. AZMACORT [Suspect]
     Indication: ASTHMA
     Dosage: IN THE MORNING
     Route: 055
     Dates: start: 20060101
  2. MONTELUKAST [Concomitant]
     Indication: ASTHMA
     Route: 048
  3. LORATADINE [Concomitant]
     Indication: SEASONAL ALLERGY
     Route: 048

REACTIONS (3)
  - HEADACHE [None]
  - OROPHARYNGEAL PAIN [None]
  - PHARYNGITIS STREPTOCOCCAL [None]
